FAERS Safety Report 6989013-3 (Version None)
Quarter: 2010Q3

REPORT INFORMATION
  Report Type: 
  Country: None (occurrence: None)
  Receive Date: 20100916
  Receipt Date: 20091104
  Transmission Date: 20110219
  Serious: Yes (Death, Other)
  Sender: FDA-Public Use
  Company Number: BR-PFIZER INC-2009245008

PATIENT
  Age: 75 Year
  Sex: Female

DRUGS (2)
  1. LYRICA [Suspect]
     Indication: TRIGEMINAL NEURALGIA
     Dosage: UNK
     Route: 048
     Dates: start: 20090101
  2. GABAPENTIN [Suspect]
     Indication: TRIGEMINAL NEURALGIA
     Dosage: UNK
     Dates: start: 20090101

REACTIONS (8)
  - DEATH [None]
  - DRUG INEFFECTIVE [None]
  - DYSPNOEA [None]
  - MALAISE [None]
  - NAUSEA [None]
  - PYREXIA [None]
  - SYNCOPE [None]
  - VOMITING [None]
